FAERS Safety Report 17317934 (Version 1)
Quarter: 2020Q1

REPORT INFORMATION
  Report Type: Spontaneous
  Country: US (occurrence: US)
  Receive Date: 20200124
  Receipt Date: 20200124
  Transmission Date: 20200409
  Serious: Yes (Other)
  Sender: FDA-Public Use
  Company Number: US-ANIPHARMA-2019-US-004030

PATIENT
  Sex: Male

DRUGS (4)
  1. NORCO [Suspect]
     Active Substance: ACETAMINOPHEN\HYDROCODONE BITARTRATE
     Dosage: UNK
     Route: 065
  2. LYRICA [Suspect]
     Active Substance: PREGABALIN
     Dosage: UNK
     Route: 065
  3. REGLAN [Suspect]
     Active Substance: METOCLOPRAMIDE HYDROCHLORIDE
     Indication: PRODUCT USED FOR UNKNOWN INDICATION
     Dosage: UNK
     Route: 065
  4. COMPAZINE [Suspect]
     Active Substance: PROCHLORPERAZINE MALEATE
     Dosage: UNK
     Route: 065

REACTIONS (9)
  - Pain [Not Recovered/Not Resolved]
  - Dysarthria [Not Recovered/Not Resolved]
  - Dyslexia [Not Recovered/Not Resolved]
  - Torticollis [Unknown]
  - Dystonia [Unknown]
  - Tardive dyskinesia [Unknown]
  - Neuralgia [Not Recovered/Not Resolved]
  - Mental disability [Not Recovered/Not Resolved]
  - Panic attack [Not Recovered/Not Resolved]
